FAERS Safety Report 5227202-9 (Version None)
Quarter: 2007Q1

REPORT INFORMATION
  Report Type: 
  Country: None (occurrence: None)
  Receive Date: 20070202
  Receipt Date: 20070131
  Transmission Date: 20070707
  Serious: Yes (Life-Threatening)
  Sender: FDA-Public Use
  Company Number: JP-JPN-A200604026

PATIENT
  Age: 27 Year
  Sex: Female
  Weight: 52 kg

DRUGS (8)
  1. PAXIL [Suspect]
     Indication: PANIC DISORDER
     Route: 048
     Dates: start: 20060606, end: 20060622
  2. SOLANAX [Suspect]
     Indication: PANIC DISORDER
     Route: 065
     Dates: start: 20060101, end: 20060622
  3. ROHYPNOL [Suspect]
     Indication: PANIC DISORDER
     Route: 048
     Dates: start: 20060601, end: 20060622
  4. MEILAX [Suspect]
     Indication: PANIC DISORDER
     Route: 048
     Dates: end: 20060622
  5. SEROQUEL [Suspect]
     Indication: PANIC DISORDER
     Route: 048
     Dates: start: 20060101, end: 20060622
  6. VEGETAMIN A [Suspect]
     Indication: PANIC DISORDER
     Route: 048
     Dates: start: 20060519, end: 20060622
  7. UNKNOWN NAME [Suspect]
     Indication: PANIC DISORDER
     Route: 065
  8. BETAMETHASONE SODIUM PHOSPHATE [Concomitant]
     Dates: start: 20060622

REACTIONS (10)
  - APHTHOUS STOMATITIS [None]
  - BLISTER [None]
  - DRUG HYPERSENSITIVITY [None]
  - HEPATIC FUNCTION ABNORMAL [None]
  - LEUKOPENIA [None]
  - PYREXIA [None]
  - RASH [None]
  - STEVENS-JOHNSON SYNDROME [None]
  - TOXIC EPIDERMAL NECROLYSIS [None]
  - VIRAL INFECTION [None]
